FAERS Safety Report 20803998 (Version 1)
Quarter: 2022Q2

REPORT INFORMATION
  Report Type: Spontaneous
  Country: US (occurrence: US)
  Receive Date: 20220509
  Receipt Date: 20220509
  Transmission Date: 20220721
  Serious: No
  Sender: FDA-Public Use
  Company Number: US-PFIZER INC-202200403678

PATIENT
  Age: 64 Year
  Sex: Male

DRUGS (2)
  1. XELJANZ [Interacting]
     Active Substance: TOFACITINIB CITRATE
     Dosage: UNK
     Dates: start: 20220315
  2. PREDNISONE [Interacting]
     Active Substance: PREDNISONE
     Dosage: 30 MG, DAILY

REACTIONS (3)
  - Drug interaction [Unknown]
  - Pain in extremity [Unknown]
  - Arthralgia [Unknown]
